FAERS Safety Report 9303796 (Version 1)
Quarter: 2013Q2

REPORT INFORMATION
  Report Type: Spontaneous
  Country: IT (occurrence: IT)
  Receive Date: 20130522
  Receipt Date: 20130522
  Transmission Date: 20140414
  Serious: Yes (Other)
  Sender: FDA-Public Use
  Company Number: IT-TEVA-405665ISR

PATIENT
  Age: 38 Year
  Sex: Male

DRUGS (1)
  1. IBUPROFEN [Suspect]
     Indication: ARTHRALGIA
     Dosage: 1 DOSAGE FORMS DAILY;
     Route: 048
     Dates: start: 20130324, end: 20130324

REACTIONS (2)
  - Laryngeal oedema [Recovering/Resolving]
  - Face oedema [Recovering/Resolving]
